FAERS Safety Report 8391503-6 (Version None)
Quarter: 2012Q1

REPORT INFORMATION
  Report Type: 
  Country: None (occurrence: None)
  Receive Date: 20120323
  Receipt Date: 20110628
  Transmission Date: 20120608
  Serious: Yes (Hospitalization)
  Sender: FDA-Public Use
  Company Number: 163-21880-11042078

PATIENT
  Age: 58 Year
  Sex: Female
  Weight: 48.0813 kg

DRUGS (20)
  1. CYTOXAN [Concomitant]
  2. FLEXERIL [Concomitant]
  3. MAGNESIUM (MAGNESIUM) (UNKNOWN) [Concomitant]
  4. COLACE (DOCUSATE SODIUM) (UNKNOWN) [Concomitant]
  5. ELAVIL (AMITRIPTYLINE HYDROCHLORIDE) (UNKNOWN) [Concomitant]
  6. TYLENOL (PARACETAMOL) (UNKNOWN) [Concomitant]
  7. ULTRAM (TRAMADOL HYDROCHLORIDE) (UNKNOWN) [Concomitant]
  8. DEXAMETHASONE [Concomitant]
  9. MESNA [Concomitant]
  10. POTASSIUM (POTASSIUM) (UNKNOWN) [Concomitant]
  11. REVLIMID [Suspect]
     Indication: MULTIPLE MYELOMA
     Dosage: 15 MG, QD, 2 WEEKS ON, 1 WEEK OFF, PO
     Route: 048
     Dates: start: 20110126, end: 20110413
  12. METOPROLOL TARTRATE [Concomitant]
  13. BENADRYL (CLONALIN) (UNKNOWN) [Concomitant]
  14. BACTRIM [Concomitant]
  15. PREMARIN [Concomitant]
  16. ANTIEMETICS (ANTIEMETICS AND ANTINAUSEANTS) (UNKNOWN) [Concomitant]
  17. OXYCODONE (OXYCODONE) (UNKNOWN) [Concomitant]
  18. DOXORUBICIN HCL [Concomitant]
  19. LOVENOX (HEPARIN-FRACTION, SODIUM SALT) (UNKNOWN) [Concomitant]
  20. MULTIVITAMINS (MULTIVITAMINS (MULTIVITAMINS) (TABLETS) [Concomitant]

REACTIONS (2)
  - MULTIPLE MYELOMA [None]
  - DRUG INEFFECTIVE [None]
